FAERS Safety Report 22791595 (Version 3)
Quarter: 2024Q4

REPORT INFORMATION
  Report Type: Report from Study
  Country: GB (occurrence: GB)
  Receive Date: 20230807
  Receipt Date: 20241217
  Transmission Date: 20250115
  Serious: No
  Sender: SANDOZ
  Company Number: GB-SANDOZ-SDZ2023GB009716

PATIENT
  Sex: Male

DRUGS (2)
  1. OMNITROPE [Suspect]
     Active Substance: SOMATROPIN
     Indication: Hypopituitarism
     Dosage: 1 MG, QD
     Route: 058
     Dates: start: 20230616
  2. OMNITROPE [Suspect]
     Active Substance: SOMATROPIN
     Dosage: 1.20 MG, QD
     Route: 058

REACTIONS (4)
  - Injection site pain [Unknown]
  - Injection site discharge [Unknown]
  - Incorrect dose administered [Unknown]
  - Product dose omission issue [Unknown]
